FAERS Safety Report 11740947 (Version 1)
Quarter: 2015Q4

REPORT INFORMATION
  Report Type: Spontaneous
  Country: US (occurrence: US)
  Receive Date: 20151115
  Receipt Date: 20151115
  Transmission Date: 20160304
  Serious: Yes (Life-Threatening)
  Sender: FDA-Public Use
  Company Number: US-009507513-1511USA006078

PATIENT
  Age: 36 Year
  Sex: Male

DRUGS (4)
  1. METHYLPREDNISOLONE SODIUM SUCCINATE. [Suspect]
     Active Substance: METHYLPREDNISOLONE SODIUM SUCCINATE
     Indication: STATUS ASTHMATICUS
     Route: 042
  2. TERBUTALINE SULFATE. [Concomitant]
     Active Substance: TERBUTALINE SULFATE
     Route: 058
  3. MAGNESIUM SULFATE. [Concomitant]
     Active Substance: MAGNESIUM SULFATE
     Indication: STATUS ASTHMATICUS
  4. HELIUM (+) OXYGEN [Concomitant]

REACTIONS (1)
  - Drug ineffective [Unknown]
